FAERS Safety Report 7701690-8 (Version None)
Quarter: 2011Q3

REPORT INFORMATION
  Report Type: 
  Country: None (occurrence: None)
  Receive Date: 20110822
  Receipt Date: 20110801
  Transmission Date: 20111222
  Serious: No
  Sender: FDA-Public Use
  Company Number: US-BAYER-2011-067656

PATIENT
  Age: 19 Year
  Sex: Female

DRUGS (2)
  1. CIPROFLOXACIN [Suspect]
     Dosage: UNK
     Route: 042
     Dates: start: 20110730
  2. BENADRYL [Concomitant]

REACTIONS (2)
  - URTICARIA [None]
  - SWOLLEN TONGUE [None]
